FAERS Safety Report 7556911-1 (Version None)
Quarter: 2011Q2

REPORT INFORMATION
  Report Type: 
  Country: None (occurrence: None)
  Receive Date: 20110620
  Receipt Date: 20110606
  Transmission Date: 20111010
  Serious: Yes (Hospitalization, Other)
  Sender: FDA-Public Use
  Company Number: PHHY2011US43876

PATIENT
  Sex: Female

DRUGS (7)
  1. LOPRESSOR [Suspect]
     Dosage: 50 MG, BID
     Route: 048
     Dates: start: 20110511, end: 20110512
  2. DRONEDARONE HCL [Suspect]
     Dosage: 400 MG, UNK
     Dates: start: 20110511, end: 20110512
  3. MULTAQ [Suspect]
     Dosage: 400 MG, BID
     Route: 048
     Dates: start: 20110511, end: 20110512
  4. COUMADIN [Suspect]
     Dosage: UNK
     Dates: start: 20110511
  5. LISINOPRIL [Concomitant]
     Dosage: 20 MG, UNK
  6. SYNTHROID [Concomitant]
     Dosage: 50 MG, UNK
  7. AMLODIPINE [Concomitant]
     Dosage: 5 MG, UNK

REACTIONS (2)
  - BLOOD CREATININE INCREASED [None]
  - RENAL FAILURE ACUTE [None]
